FAERS Safety Report 17920154 (Version 1)
Quarter: 2020Q2

REPORT INFORMATION
  Report Type: Spontaneous
  Country: US (occurrence: US)
  Receive Date: 20200620
  Receipt Date: 20200620
  Transmission Date: 20200714
  Serious: No
  Sender: FDA-Public Use
  Company Number: US-TEVA-2020-US-1788844

PATIENT
  Sex: Female

DRUGS (3)
  1. CLONAZEPAM. [Suspect]
     Active Substance: CLONAZEPAM
     Route: 065
  2. ZOLPIDEM NORTHSTAR [Concomitant]
  3. ZOLPIDEM ACCORD [Concomitant]

REACTIONS (2)
  - Drug ineffective [Unknown]
  - Product substitution issue [Unknown]
